FAERS Safety Report 15001979 (Version 1)
Quarter: 2018Q2

REPORT INFORMATION
  Report Type: Spontaneous
  Country: US (occurrence: US)
  Receive Date: 20180612
  Receipt Date: 20180612
  Transmission Date: 20180711
  Serious: No
  Sender: FDA-Public Use
  Company Number: US-SEPTODONT-201704002

PATIENT
  Age: 14 Year
  Sex: Female

DRUGS (3)
  1. SEPTOCAINE AND EPINEPHRINE [Suspect]
     Active Substance: ARTICAINE HYDROCHLORIDE\EPINEPHRINE BITARTRATE
     Indication: LOCAL ANAESTHESIA
     Dosage: BENCO GIBSON 30G 10MM NEEDLE?INFILTRATION IN ASA HEALTHY TISSUE
     Route: 004
     Dates: start: 20170303, end: 20170303
  2. BENZOCAINE. [Concomitant]
     Active Substance: BENZOCAINE
     Route: 061
     Dates: start: 20170303, end: 20170303
  3. BUPROPION HYDROCHLORIDE. [Concomitant]
     Active Substance: BUPROPION HYDROCHLORIDE

REACTIONS (1)
  - Hypoaesthesia [Recovered/Resolved]

NARRATIVE: CASE EVENT DATE: 20170303
